FAERS Safety Report 4789925-5 (Version None)
Quarter: 2005Q4

REPORT INFORMATION
  Report Type: 
  Country: None (occurrence: None)
  Receive Date: 20051006
  Receipt Date: 20050629
  Transmission Date: 20060501
  Serious: Yes (Hospitalization)
  Sender: FDA-Public Use
  Company Number: US-MERCK-0506USA04321

PATIENT
  Age: 48 Year
  Sex: Female
  Weight: 68 kg

DRUGS (9)
  1. VIOXX [Suspect]
     Indication: BACK DISORDER
     Route: 048
     Dates: start: 20000101, end: 20001220
  2. VIOXX [Suspect]
     Route: 048
     Dates: start: 20001221, end: 20040901
  3. VIOXX [Suspect]
     Indication: BACK PAIN
     Route: 048
     Dates: start: 20000101, end: 20001220
  4. VIOXX [Suspect]
     Route: 048
     Dates: start: 20001221, end: 20040901
  5. CALCIUM (UNSPECIFIED) [Concomitant]
     Route: 065
  6. VITAMINS (UNSPECIFIED) [Concomitant]
     Route: 065
  7. ESTRADIOL;NORGESTIMATE [Concomitant]
     Indication: MENOPAUSE
     Route: 065
     Dates: start: 19980101, end: 20020301
  8. BAYCOL [Concomitant]
     Route: 065
  9. PRILOSEC [Concomitant]
     Indication: DYSPEPSIA
     Route: 065

REACTIONS (3)
  - CORONARY ARTERY DISEASE [None]
  - HYPERTENSION [None]
  - MYOCARDIAL INFARCTION [None]
